FAERS Safety Report 26012871 (Version 1)
Quarter: 2025Q4

REPORT INFORMATION
  Report Type: Spontaneous
  Country: US (occurrence: None)
  Receive Date: 20251107
  Receipt Date: 20251107
  Transmission Date: 20260117
  Serious: Yes (Hospitalization)
  Sender: FDA-CTU
  Company Number: None

PATIENT
  Sex: Female

DRUGS (5)
  1. OPSUMIT [Suspect]
     Active Substance: MACITENTAN
     Indication: Pulmonary arterial hypertension
     Dosage: FREQUENCY : DAILY;?
     Route: 048
     Dates: start: 20180918
  2. REMODULIN [Concomitant]
     Active Substance: TREPROSTINIL
  3. STERILE DILUENT FOR REMODULIN [Concomitant]
     Active Substance: WATER
  4. WINREVAIR [Concomitant]
     Active Substance: SOTATERCEPT-CSRK
  5. TADALAFIL [Concomitant]
     Active Substance: TADALAFIL

REACTIONS (6)
  - Wrong technique in device usage process [None]
  - Palpitations [None]
  - Flushing [None]
  - Dizziness [None]
  - Malaise [None]
  - Chest discomfort [None]
